FAERS Safety Report 6655033-1 (Version None)
Quarter: 2010Q1

REPORT INFORMATION
  Report Type: 
  Country: None (occurrence: None)
  Receive Date: 20100329
  Receipt Date: 20091218
  Transmission Date: 20100710
  Serious: Yes (Death)
  Sender: FDA-Public Use
  Company Number: DE-JNJFOC-20090501549

PATIENT
  Age: 58 Year
  Sex: Male

DRUGS (5)
  1. TAVANIC [Suspect]
     Indication: RESPIRATORY TRACT INFECTION
     Route: 048
  2. TAVANIC [Suspect]
     Route: 048
  3. METAMIZOL [Concomitant]
     Indication: HEADACHE
     Route: 048
  4. HEXORAL [Concomitant]
     Indication: OROPHARYNGEAL PAIN
     Route: 055
  5. ACC AKUT [Concomitant]
     Indication: HEADACHE
     Route: 048

REACTIONS (3)
  - COMPLETED SUICIDE [None]
  - INTENTIONAL OVERDOSE [None]
  - RASH [None]
